FAERS Safety Report 23490885 (Version 1)
Quarter: 2024Q1

REPORT INFORMATION
  Report Type: Spontaneous
  Country: US (occurrence: None)
  Receive Date: 20240206
  Receipt Date: 20240206
  Transmission Date: 20240409
  Serious: No
  Sender: FDA-Public Use
  Company Number: US-ROCHE-3423435

PATIENT
  Sex: Female

DRUGS (8)
  1. NUTROPIN AQ [Suspect]
     Active Substance: SOMATROPIN
     Indication: Neoplasm
     Dosage: NUTROPIN NUSPIN AQ 10MG
     Route: 058
     Dates: start: 20230912
  2. NUTROPIN AQ [Suspect]
     Active Substance: SOMATROPIN
  3. CYCLOBENZAPRINE [Concomitant]
     Active Substance: CYCLOBENZAPRINE
     Route: 048
  4. DULOXETINE HYDROCHLORIDE [Concomitant]
     Active Substance: DULOXETINE HYDROCHLORIDE
  5. FUROSEMIDE [Concomitant]
     Active Substance: FUROSEMIDE
     Route: 048
  6. HYDROCORTISONE [Concomitant]
     Active Substance: HYDROCORTISONE
  7. LEVOTHYROXINE [Concomitant]
     Active Substance: LEVOTHYROXINE\LEVOTHYROXINE SODIUM
     Route: 048
  8. TRAVOPROST [Concomitant]
     Active Substance: TRAVOPROST

REACTIONS (4)
  - Off label use [Unknown]
  - Cerebral disorder [Unknown]
  - Lethargy [Unknown]
  - Arthralgia [Unknown]
